FAERS Safety Report 18110603 (Version 2)
Quarter: 2020Q3

REPORT INFORMATION
  Report Type: Report from Study
  Country: US (occurrence: US)
  Receive Date: 20200804
  Receipt Date: 20200814
  Transmission Date: 20201103
  Serious: Yes (Hospitalization)
  Sender: FDA-Public Use
  Company Number: US-ACTELION-A-US2020-206531

PATIENT
  Sex: Male
  Weight: 84.81 kg

DRUGS (4)
  1. OPSUMIT [Suspect]
     Active Substance: MACITENTAN
     Indication: PULMONARY ARTERIAL HYPERTENSION
     Dosage: 10 MG, QD
     Route: 048
  2. ADCIRCA [Concomitant]
     Active Substance: TADALAFIL
  3. TREPROSTINIL. [Concomitant]
     Active Substance: TREPROSTINIL
     Dosage: 18 NG/KG, PER MIN
     Route: 042
  4. ELIQUIS [Concomitant]
     Active Substance: APIXABAN

REACTIONS (7)
  - Cardiac ablation [Unknown]
  - Infusion site rash [Unknown]
  - Rash [Unknown]
  - Tachycardia [Unknown]
  - Feeling abnormal [Unknown]
  - Heart rate abnormal [Unknown]
  - Atrial fibrillation [Unknown]
